FAERS Safety Report 6167388-5 (Version None)
Quarter: 2009Q2

REPORT INFORMATION
  Report Type: 
  Country: None (occurrence: None)
  Receive Date: 20090424
  Receipt Date: 20090417
  Transmission Date: 20091009
  Serious: Yes (Other)
  Sender: FDA-Public Use
  Company Number: US-ABBOTT-09P-163-0568762-00

PATIENT
  Sex: Male
  Weight: 120.31 kg

DRUGS (17)
  1. HUMIRA [Suspect]
     Indication: PSORIASIS
     Route: 058
     Dates: start: 20070101, end: 20090201
  2. HUMIRA [Suspect]
  3. HUMIRA [Suspect]
     Indication: PSORIASIS
     Dates: start: 20060101, end: 20070101
  4. METHOTREXATE [Concomitant]
     Indication: PSORIASIS
     Route: 048
  5. LYSINE [Concomitant]
     Indication: ROUTINE HEALTH MAINTENANCE
     Route: 048
  6. TRICOR [Concomitant]
     Indication: BLOOD CHOLESTEROL INCREASED
     Route: 048
  7. NASONEX [Concomitant]
     Indication: HYPERSENSITIVITY
  8. HUMALOG [Concomitant]
     Indication: DIABETES MELLITUS
  9. ASPIRIN [Concomitant]
     Indication: ROUTINE HEALTH MAINTENANCE
     Route: 048
  10. AVANDIA [Concomitant]
     Indication: DIABETES MELLITUS
     Route: 048
  11. BYETTA [Concomitant]
     Indication: DIABETES MELLITUS
  12. HYTRIN [Concomitant]
     Indication: HYPERTENSION
     Route: 048
  13. FOLIC ACID [Concomitant]
     Indication: PSORIASIS
     Route: 048
  14. LANTUS [Concomitant]
     Indication: DIABETES MELLITUS
  15. METOPROLOL TARTRATE [Concomitant]
     Indication: HYPERTENSION
     Route: 048
  16. NEXIUM [Concomitant]
     Indication: GASTROOESOPHAGEAL REFLUX DISEASE
     Route: 048
  17. ALLOPURINOL [Concomitant]
     Indication: GOUT
     Route: 048

REACTIONS (3)
  - CHRONIC MYELOID LEUKAEMIA [None]
  - PSORIASIS [None]
  - SKIN ULCER [None]
